FAERS Safety Report 4501446-3 (Version None)
Quarter: 2004Q4

REPORT INFORMATION
  Report Type: 
  Country: None (occurrence: None)
  Receive Date: 20041110
  Receipt Date: 20041101
  Transmission Date: 20050328
  Serious: Yes (Death)
  Sender: FDA-Public Use
  Company Number: USA-2004-0017399

PATIENT
  Sex: Male

DRUGS (1)
  1. OXYCONTIN TABLETS(OXYCODONE HYDROCHLORIDE) CR TABLET [Suspect]
     Dosage: MG

REACTIONS (3)
  - ASPIRATION [None]
  - CHOKING [None]
  - DRUG ABUSER [None]
